FAERS Safety Report 24006470 (Version 1)
Quarter: 2024Q2

REPORT INFORMATION
  Report Type: Spontaneous
  Country: US (occurrence: None)
  Receive Date: 20240624
  Receipt Date: 20240624
  Transmission Date: 20240716
  Serious: No
  Sender: FDA-Public Use
  Company Number: None

PATIENT
  Age: 63 Year
  Sex: Female

DRUGS (1)
  1. LENALIDOMIDE [Suspect]
     Active Substance: LENALIDOMIDE
     Indication: Plasmacytoma
     Dosage: 25MG QD ORAL?
     Route: 048
     Dates: start: 20240621

REACTIONS (2)
  - Off label use [None]
  - Plasmacytoma [None]

NARRATIVE: CASE EVENT DATE: 20240624
